FAERS Safety Report 6820455-2 (Version None)
Quarter: 2010Q3

REPORT INFORMATION
  Report Type: 
  Country: None (occurrence: None)
  Receive Date: 20100707
  Receipt Date: 20100623
  Transmission Date: 20110219
  Serious: Yes (Other)
  Sender: FDA-Public Use
  Company Number: NZ-MYLANLABS-2010S1011185

PATIENT
  Age: 54 Year
  Sex: Male

DRUGS (1)
  1. AZATHIOPRINE [Suspect]
     Indication: CROHN'S DISEASE
     Dosage: INCREASED TO 3.5 MG/KG WITHIN 18 MONTHS
     Route: 065
     Dates: start: 20060101, end: 20070901

REACTIONS (2)
  - NODULAR REGENERATIVE HYPERPLASIA [None]
  - THROMBOCYTOPENIA [None]
